FAERS Safety Report 18570630 (Version 1)
Quarter: 2020Q4

REPORT INFORMATION
  Report Type: Spontaneous
  Country: GB (occurrence: GB)
  Receive Date: 20201202
  Receipt Date: 20201202
  Transmission Date: 20210114
  Serious: Yes (Other)
  Sender: FDA-Public Use
  Company Number: GB-TEVA-2020-GB-1853141

PATIENT
  Age: 60 Year
  Sex: Male
  Weight: 82 kg

DRUGS (3)
  1. AMLODIPINE [Suspect]
     Active Substance: AMLODIPINE BESYLATE
     Dosage: 5 MILLIGRAM DAILY; EACH MORNING
     Dates: start: 20200212
  2. SILDENAFIL. [Concomitant]
     Active Substance: SILDENAFIL
     Dosage: 1 DOSAGE FORMS DAILY; AS NEEDED
     Dates: start: 20200212
  3. LISINOPRIL. [Concomitant]
     Active Substance: LISINOPRIL
     Dosage: 1 DOSAGE FORM
     Dates: start: 20200212

REACTIONS (1)
  - Gingival hypertrophy [Recovering/Resolving]

NARRATIVE: CASE EVENT DATE: 20201030
